FAERS Safety Report 24576194 (Version 1)
Quarter: 2024Q4

REPORT INFORMATION
  Report Type: Spontaneous
  Country: US (occurrence: None)
  Receive Date: 20241102
  Receipt Date: 20241102
  Transmission Date: 20250115
  Serious: No
  Sender: Public
  Company Number: None

PATIENT
  Age: 59 Year
  Sex: Female
  Weight: 63 kg

DRUGS (7)
  1. UMECLIDINIUM BROMIDE\VILANTEROL TRIFENATATE [Suspect]
     Active Substance: UMECLIDINIUM BROMIDE\VILANTEROL TRIFENATATE
  2. ZIPRASIDONE [Concomitant]
     Active Substance: ZIPRASIDONE
  3. PRAVASTATIN [Concomitant]
     Active Substance: PRAVASTATIN
  4. VITAMIN D3 [Concomitant]
     Active Substance: CHOLECALCIFEROL
  5. C [Concomitant]
  6. IRON [Concomitant]
     Active Substance: IRON
  7. calcuum [Concomitant]

REACTIONS (1)
  - Neck pain [None]

NARRATIVE: CASE EVENT DATE: 20241027
